FAERS Safety Report 6331065-8 (Version None)
Quarter: 2009Q3

REPORT INFORMATION
  Report Type: 
  Country: None (occurrence: None)
  Receive Date: 20090827
  Receipt Date: 20090821
  Transmission Date: 20100115
  Serious: Yes (Disabling)
  Sender: FDA-Public Use
  Company Number: B0589941A

PATIENT
  Sex: Female
  Weight: 37 kg

DRUGS (4)
  1. ARIXTRA [Suspect]
     Indication: THROMBOSIS PROPHYLAXIS
     Dosage: 1.5MG PER DAY
     Route: 058
     Dates: start: 20081101, end: 20081104
  2. CONSTAN [Concomitant]
     Indication: FEMUR FRACTURE
     Route: 048
  3. NORVASC [Concomitant]
     Indication: FEMUR FRACTURE
     Route: 048
  4. FUROSEMIDE [Concomitant]
     Indication: FEMUR FRACTURE
     Route: 048

REACTIONS (1)
  - HAEMOGLOBIN DECREASED [None]
